FAERS Safety Report 9165265 (Version 1)
Quarter: 2013Q1

REPORT INFORMATION
  Report Type: Spontaneous
  Country: ES (occurrence: ES)
  Receive Date: 20130315
  Receipt Date: 20130315
  Transmission Date: 20140127
  Serious: Yes (Other)
  Sender: FDA-Public Use
  Company Number: ES-ELI_LILLY_AND_COMPANY-ES201303000939

PATIENT
  Age: 80 Year
  Sex: Female

DRUGS (2)
  1. FORSTEO [Suspect]
     Indication: OSTEOPOROSIS
     Dosage: 20 UG, QD
     Route: 058
     Dates: start: 201202
  2. ADIRO [Concomitant]
     Indication: CARDIAC DISORDER
     Dosage: UNK, QD
     Dates: start: 1998

REACTIONS (3)
  - Osteonecrosis [Unknown]
  - Gingival pain [Not Recovered/Not Resolved]
  - Bone disorder [Unknown]
